FAERS Safety Report 4304488-6 (Version None)
Quarter: 2004Q1

REPORT INFORMATION
  Report Type: 
  Country: None (occurrence: None)
  Receive Date: 20040224
  Receipt Date: 20040212
  Transmission Date: 20041129
  Serious: Yes (Hospitalization, Other)
  Sender: FDA-Public Use
  Company Number: JP-JNJFOC-20040202721

PATIENT
  Age: 71 Year
  Sex: Female
  Weight: 60 kg

DRUGS (6)
  1. INFLIXIMAB, RECOMBINANT - BLINDED (INFLIXIMAB, RECOMBINANT) LYOPHILIZE [Suspect]
     Indication: RHEUMATOID ARTHRITIS
     Dosage: INTRAVENOUS DRIP
     Route: 041
     Dates: start: 20000616, end: 20000616
  2. INFLIXIMAB, RECOMBINANT - BLINDED (INFLIXIMAB, RECOMBINANT) LYOPHILIZE [Suspect]
     Indication: RHEUMATOID ARTHRITIS
     Dosage: INTRAVENOUS DRIP
     Route: 041
     Dates: start: 20000630, end: 20000630
  3. INFLIXIMAB, RECOMBINANT - BLINDED (INFLIXIMAB, RECOMBINANT) LYOPHILIZE [Suspect]
     Indication: RHEUMATOID ARTHRITIS
     Dosage: INTRAVENOUS DRIP
     Route: 041
     Dates: start: 20000728, end: 20000728
  4. REMICADE [Suspect]
     Indication: RHEUMATOID ARTHRITIS
     Dosage: 3 MG/KG, 1 IN 1 AS NECESSARY , INTRAVENOUS DRIP
     Route: 041
     Dates: start: 20001017, end: 20001017
  5. REMICADE [Suspect]
     Indication: RHEUMATOID ARTHRITIS
     Dosage: 3 MG/KG, 1 IN 1 AS NECESSARY , INTRAVENOUS DRIP
     Route: 041
     Dates: start: 20001212, end: 20001212
  6. REMICADE [Suspect]
     Indication: RHEUMATOID ARTHRITIS
     Dosage: 3 MG/KG, 1 IN 1 AS NECESSARY , INTRAVENOUS DRIP
     Route: 041
     Dates: start: 20010206, end: 20010206

REACTIONS (9)
  - BLISTER [None]
  - CORNEAL PERFORATION [None]
  - HERPES ZOSTER [None]
  - INTERVERTEBRAL DISC PROTRUSION [None]
  - KERATITIS HERPETIC [None]
  - PAIN [None]
  - PARAESTHESIA [None]
  - RASH [None]
  - SCIATICA [None]
